FAERS Safety Report 4971859-4 (Version None)
Quarter: 2006Q2

REPORT INFORMATION
  Report Type: 
  Country: None (occurrence: None)
  Receive Date: 20060413
  Receipt Date: 20051014
  Transmission Date: 20061013
  Serious: Yes (Hospitalization, Disabling, Other)
  Sender: FDA-Public Use
  Company Number: US-MERCK-0510USA07545

PATIENT
  Age: 51 Year
  Sex: Female
  Weight: 88 kg

DRUGS (8)
  1. VIOXX [Suspect]
     Indication: OEDEMA PERIPHERAL
     Route: 048
     Dates: start: 20020105, end: 20040901
  2. VIOXX [Suspect]
     Route: 048
     Dates: start: 20020105, end: 20040901
  3. VIOXX [Suspect]
     Route: 048
     Dates: start: 20020105, end: 20040901
  4. VIOXX [Suspect]
     Route: 048
     Dates: start: 20020105, end: 20040901
  5. VIOXX [Suspect]
     Indication: BACK PAIN
     Route: 048
     Dates: start: 20020105, end: 20040901
  6. VIOXX [Suspect]
     Route: 048
     Dates: start: 20020105, end: 20040901
  7. VIOXX [Suspect]
     Route: 048
     Dates: start: 20020105, end: 20040901
  8. VIOXX [Suspect]
     Route: 048
     Dates: start: 20020105, end: 20040901

REACTIONS (10)
  - ARTHRALGIA [None]
  - BACK PAIN [None]
  - CEREBROVASCULAR ACCIDENT [None]
  - CHEST PAIN [None]
  - DYSPNOEA [None]
  - HEMIPARESIS [None]
  - HYPERTENSION [None]
  - PRESCRIBED OVERDOSE [None]
  - SYNCOPE VASOVAGAL [None]
  - THROMBOTIC STROKE [None]
